FAERS Safety Report 4821147-1 (Version None)
Quarter: 2005Q4

REPORT INFORMATION
  Report Type: 
  Country: None (occurrence: None)
  Receive Date: 20051103
  Receipt Date: 20051025
  Transmission Date: 20060501
  Serious: Yes (Hospitalization)
  Sender: FDA-Public Use
  Company Number: 2005147109

PATIENT
  Sex: Female
  Weight: 63.5036 kg

DRUGS (3)
  1. LIPITOR [Suspect]
     Indication: BLOOD CHOLESTEROL
     Dosage: 10 MG (20 MG, HALF A TABLET DAILY)
  2. VITAMINS (VITAMINS) [Concomitant]
  3. TYLENOL [Concomitant]

REACTIONS (6)
  - ABDOMINAL DISTENSION [None]
  - DYSPEPSIA [None]
  - FLATULENCE [None]
  - GASTRIC DISORDER [None]
  - HEPATIC CYST [None]
  - WRONG TECHNIQUE IN DRUG USAGE PROCESS [None]
